FAERS Safety Report 10188895 (Version 1)
Quarter: 2014Q2

REPORT INFORMATION
  Report Type: Spontaneous
  Country: US (occurrence: US)
  Receive Date: 20140522
  Receipt Date: 20140522
  Transmission Date: 20141212
  Serious: No
  Sender: FDA-Public Use
  Company Number: US-SA-2014SA028627

PATIENT
  Age: 65 Year
  Sex: Male
  Weight: 99.79 kg

DRUGS (6)
  1. LANTUS SOLOSTAR [Suspect]
     Indication: TYPE 2 DIABETES MELLITUS
     Dosage: 15 UNITS AT BEDTIME DOSE:15 UNIT(S)
     Route: 051
     Dates: start: 20131218
  2. SOLOSTAR [Concomitant]
     Indication: TYPE 2 DIABETES MELLITUS
     Dates: start: 201312
  3. GLIPIZIDE [Concomitant]
     Indication: DIABETES MELLITUS
     Dates: start: 20130820
  4. METFORMIN [Concomitant]
     Dates: start: 200110
  5. ATORVASTATIN [Concomitant]
     Dates: start: 200504
  6. ASPIRIN [Concomitant]

REACTIONS (5)
  - Cough [Unknown]
  - Nasal congestion [Unknown]
  - Blood glucose increased [Recovered/Resolved]
  - Blood glucose abnormal [Unknown]
  - Drug ineffective [Unknown]
